FAERS Safety Report 10518983 (Version 1)
Quarter: 2014Q4

REPORT INFORMATION
  Report Type: Spontaneous
  Country: US (occurrence: None)
  Receive Date: 20141014
  Receipt Date: 20141014
  Transmission Date: 20150528
  Serious: No
  Sender: FDA-Public Use
  Company Number: None

PATIENT
  Age: 76 Year
  Sex: Male
  Weight: 90.8 kg

DRUGS (1)
  1. RITUXIMAB [Suspect]
     Active Substance: RITUXIMAB
     Dates: start: 20130926

REACTIONS (6)
  - Transfusion reaction [None]
  - Tachycardia [None]
  - Hypotension [None]
  - Pyrexia [None]
  - Rash [None]
  - Tachypnoea [None]

NARRATIVE: CASE EVENT DATE: 20130926
